FAERS Safety Report 19933351 (Version 4)
Quarter: 2022Q1

REPORT INFORMATION
  Report Type: Spontaneous
  Country: US (occurrence: US)
  Receive Date: 20211008
  Receipt Date: 20220127
  Transmission Date: 20220423
  Serious: Yes (Hospitalization, Other)
  Sender: FDA-Public Use
  Company Number: US-MALLINCKRODT PHARMACEUTICALS-T202102826

PATIENT
  Age: 66 Year
  Sex: Female
  Weight: 112 kg

DRUGS (20)
  1. H.P. ACTHAR [Suspect]
     Active Substance: CORTICOTROPIN
     Indication: Illness
     Dosage: 1 MILLILITER, TWICE A WEEK
     Route: 058
  2. H.P. ACTHAR [Suspect]
     Active Substance: CORTICOTROPIN
     Indication: Vasculitis
     Dosage: 80 UNITS THREE TIMES WEEKLY
     Route: 058
  3. H.P. ACTHAR [Suspect]
     Active Substance: CORTICOTROPIN
     Indication: Granulomatosis with polyangiitis
  4. H.P. ACTHAR [Suspect]
     Active Substance: CORTICOTROPIN
     Indication: Systemic lupus erythematosus
  5. VITAMIN B12 [Concomitant]
     Active Substance: CYANOCOBALAMIN
     Indication: Product used for unknown indication
     Dosage: UNKNOWN
     Route: 065
  6. IRON [Concomitant]
     Active Substance: IRON
     Indication: Product used for unknown indication
     Dosage: UNK
     Route: 065
  7. ACETAMINOPHEN\HYDROCODONE [Concomitant]
     Active Substance: ACETAMINOPHEN\HYDROCODONE
     Indication: Product used for unknown indication
     Dosage: UNKNOWN
     Route: 065
  8. ARIPIPRAZOLE [Concomitant]
     Active Substance: ARIPIPRAZOLE
     Indication: Product used for unknown indication
     Dosage: UNKNOWN
     Route: 065
  9. LOPERAMIDE [Concomitant]
     Active Substance: LOPERAMIDE
     Indication: Product used for unknown indication
     Dosage: 1MG/7.5ML
     Route: 065
  10. LORATADINE [Concomitant]
     Active Substance: LORATADINE
     Indication: Product used for unknown indication
     Dosage: UNKNOWN
     Route: 065
  11. LEVOTHYROXINE [Concomitant]
     Active Substance: LEVOTHYROXINE
     Indication: Product used for unknown indication
     Dosage: UNKNOWN
     Route: 065
  12. VESICARE [Concomitant]
     Active Substance: SOLIFENACIN SUCCINATE
     Indication: Product used for unknown indication
     Dosage: UNKNOWN
     Route: 065
  13. TRAZODONE HCL [Concomitant]
     Active Substance: TRAZODONE HYDROCHLORIDE
     Indication: Product used for unknown indication
     Dosage: UNKNOWN
     Route: 065
  14. PROTONIX [Concomitant]
     Active Substance: PANTOPRAZOLE SODIUM
     Indication: Product used for unknown indication
     Dosage: UNKNOWN
     Route: 065
  15. CLONAZEPAM [Concomitant]
     Active Substance: CLONAZEPAM
     Indication: Product used for unknown indication
     Dosage: UNKNOWN
     Route: 065
  16. XARELTO [Concomitant]
     Active Substance: RIVAROXABAN
     Indication: Product used for unknown indication
     Dosage: UNK
     Route: 065
  17. LYRICA [Concomitant]
     Active Substance: PREGABALIN
     Indication: Product used for unknown indication
     Dosage: UNK
     Route: 065
  18. LOMOTIL [Concomitant]
     Active Substance: ATROPINE SULFATE\DIPHENOXYLATE HYDROCHLORIDE
     Indication: Product used for unknown indication
     Dosage: UNKNOWN
     Route: 065
  19. LIPITOR [Concomitant]
     Active Substance: ATORVASTATIN CALCIUM
     Indication: Product used for unknown indication
     Dosage: UNKNOWN
     Route: 065
  20. LISINOPRIL [Concomitant]
     Active Substance: LISINOPRIL
     Indication: Product used for unknown indication
     Dosage: UNKNOWN
     Route: 065

REACTIONS (18)
  - Hospitalisation [Recovering/Resolving]
  - Systemic lupus erythematosus [Not Recovered/Not Resolved]
  - Blood glucose increased [Recovering/Resolving]
  - Pain [Not Recovered/Not Resolved]
  - Dysphonia [Not Recovered/Not Resolved]
  - Rhinorrhoea [Not Recovered/Not Resolved]
  - Flatulence [Not Recovered/Not Resolved]
  - Myalgia [Not Recovered/Not Resolved]
  - Neuralgia [Not Recovered/Not Resolved]
  - Vascular pain [Not Recovered/Not Resolved]
  - Gait disturbance [Not Recovered/Not Resolved]
  - Somnolence [Unknown]
  - Asthenia [Not Recovered/Not Resolved]
  - Diarrhoea [Not Recovered/Not Resolved]
  - Hypomania [Not Recovered/Not Resolved]
  - Insomnia [Not Recovered/Not Resolved]
  - Peripheral swelling [Not Recovered/Not Resolved]
  - Therapeutic product effect incomplete [Not Recovered/Not Resolved]

NARRATIVE: CASE EVENT DATE: 20210901
